FAERS Safety Report 22159968 (Version 11)
Quarter: 2024Q1

REPORT INFORMATION
  Report Type: Spontaneous
  Country: FR (occurrence: FR)
  Receive Date: 20230331
  Receipt Date: 20240215
  Transmission Date: 20240410
  Serious: Yes (Other)
  Sender: FDA-Public Use
  Company Number: FR-AstraZeneca-2023A063808

PATIENT
  Age: 7 Decade
  Sex: Female

DRUGS (24)
  1. IMATINIB [Interacting]
     Active Substance: IMATINIB
     Indication: Gastrointestinal stromal tumour
     Dosage: 400 MG, QD
     Route: 065
     Dates: end: 200804
  2. IMATINIB [Interacting]
     Active Substance: IMATINIB
     Indication: Lung adenocarcinoma
     Dosage: UNK
     Route: 065
     Dates: start: 200812
  3. IMATINIB [Interacting]
     Active Substance: IMATINIB
     Indication: Non-small cell lung cancer
     Dosage: 400 MG, QD
     Route: 065
     Dates: end: 202009
  4. IMATINIB [Interacting]
     Active Substance: IMATINIB
     Dosage: 200 MG, QD
     Route: 065
     Dates: start: 202104, end: 202104
  5. IMATINIB [Interacting]
     Active Substance: IMATINIB
     Dosage: 300 MG, QD
     Route: 065
     Dates: start: 202104, end: 202110
  6. IMATINIB [Interacting]
     Active Substance: IMATINIB
     Dosage: 300 MG, QD
     Route: 065
     Dates: start: 202105
  7. IMATINIB [Interacting]
     Active Substance: IMATINIB
     Dosage: 200 MG, QD
     Route: 065
     Dates: start: 202201, end: 202203
  8. IMATINIB [Interacting]
     Active Substance: IMATINIB
     Dosage: 100 MG, QD
     Route: 065
     Dates: start: 202203, end: 202206
  9. IMATINIB [Interacting]
     Active Substance: IMATINIB
     Dosage: 200 MG, QD
     Route: 065
     Dates: start: 202206
  10. AFATINIB [Suspect]
     Active Substance: AFATINIB
     Indication: Lung adenocarcinoma
     Dosage: UNK
     Route: 065
     Dates: start: 2020, end: 202009
  11. AFATINIB [Suspect]
     Active Substance: AFATINIB
     Dosage: UNK
     Route: 065
  12. CRIZOTINIB [Interacting]
     Active Substance: CRIZOTINIB
     Indication: Lung adenocarcinoma
     Dosage: 250 MG, QD
     Route: 065
     Dates: start: 202110
  13. CRIZOTINIB [Interacting]
     Active Substance: CRIZOTINIB
     Indication: Drug resistance
     Dosage: 200 MG, QD (DOSE DECREASED)
     Route: 065
     Dates: start: 202111
  14. CRIZOTINIB [Interacting]
     Active Substance: CRIZOTINIB
     Indication: Non-small cell lung cancer
     Dosage: 250 MG, QD (REDUCED DOSE)
     Route: 065
     Dates: start: 202111
  15. CRIZOTINIB [Interacting]
     Active Substance: CRIZOTINIB
     Dosage: 250 MILLIGRAM, QD (DOSE INCREASE)
     Route: 065
     Dates: start: 202201
  16. CRIZOTINIB [Interacting]
     Active Substance: CRIZOTINIB
     Dosage: 200 MG, QD
     Route: 065
     Dates: end: 202203
  17. CRIZOTINIB [Interacting]
     Active Substance: CRIZOTINIB
     Dosage: 250 MG, QD
     Route: 065
     Dates: start: 202203, end: 202206
  18. OSIMERTINIB [Suspect]
     Active Substance: OSIMERTINIB
     Indication: Lung adenocarcinoma
     Dosage: 40 MG, QD
     Route: 048
     Dates: start: 202009
  19. OSIMERTINIB [Suspect]
     Active Substance: OSIMERTINIB
     Indication: Gastrointestinal stromal tumour
     Dosage: 80 MG, QD
     Route: 048
     Dates: start: 202009
  20. OSIMERTINIB [Suspect]
     Active Substance: OSIMERTINIB
     Indication: Drug resistance
     Dosage: 40 MG, QD (DOSE REDUCTION)
     Route: 065
     Dates: start: 202104
  21. OSIMERTINIB [Suspect]
     Active Substance: OSIMERTINIB
     Dosage: 300 MG, QD
     Route: 065
     Dates: start: 202104
  22. OSIMERTINIB [Suspect]
     Active Substance: OSIMERTINIB
     Dosage: 40 MG, PER DAY
     Route: 065
     Dates: start: 202104
  23. OSIMERTINIB [Suspect]
     Active Substance: OSIMERTINIB
     Dosage: 80 MG PER DAY
     Route: 065
     Dates: start: 202009
  24. OSIMERTINIB [Suspect]
     Active Substance: OSIMERTINIB
     Dosage: 300 MG, PER DAY
     Route: 065
     Dates: start: 202104

REACTIONS (13)
  - Drug interaction [Recovered/Resolved]
  - Acute kidney injury [Recovered/Resolved]
  - Drug resistance mutation [Unknown]
  - Diarrhoea [Recovered/Resolved]
  - Blood creatine phosphokinase increased [Recovered/Resolved]
  - Lung adenocarcinoma [Unknown]
  - Malignant neoplasm progression [Unknown]
  - Gastrointestinal stromal tumour [Unknown]
  - Neoplasm progression [Unknown]
  - Drug level increased [Recovering/Resolving]
  - Drug ineffective [Unknown]
  - Overdose [Unknown]
  - Off label use [Unknown]

NARRATIVE: CASE EVENT DATE: 20220101
